FAERS Safety Report 6415884-5 (Version None)
Quarter: 2009Q4

REPORT INFORMATION
  Report Type: 
  Country: None (occurrence: None)
  Receive Date: 20091022
  Receipt Date: 20091008
  Transmission Date: 20100525
  Serious: Yes (Other)
  Sender: FDA-Public Use
  Company Number: 8053159

PATIENT
  Age: 32 Year
  Sex: Male
  Weight: 85 kg

DRUGS (3)
  1. KEPPRA [Suspect]
     Indication: EPILEPSY
     Dosage: 500 MG 2/D; PO
     Route: 048
     Dates: start: 20080927
  2. KODIPAR [Suspect]
     Indication: TOOTHACHE
     Dates: start: 20090301, end: 20090301
  3. KODIPAR [Suspect]
     Indication: TOOTHACHE
     Dosage: 1061.2 MG 1/D; PO
     Route: 048
     Dates: start: 20090830, end: 20090830

REACTIONS (6)
  - DISTURBANCE IN ATTENTION [None]
  - DIZZINESS [None]
  - DRUG INTERACTION [None]
  - INFLUENZA LIKE ILLNESS [None]
  - NAUSEA [None]
  - SOMNOLENCE [None]
